FAERS Safety Report 14515334 (Version 3)
Quarter: 2018Q3

REPORT INFORMATION
  Report Type: Spontaneous
  Country: JP (occurrence: JP)
  Receive Date: 20180210
  Receipt Date: 20180708
  Transmission Date: 20181010
  Serious: Yes (Other)
  Sender: FDA-Public Use
  Company Number: JP-MALLINCKRODT-T201800499

PATIENT
  Age: 69 Year
  Sex: Male
  Weight: 69 kg

DRUGS (28)
  1. METHADONE [Suspect]
     Active Substance: METHADONE HYDROCHLORIDE
     Dosage: 45 MG (ONE TIME DOSE 15 MG)
     Route: 048
     Dates: start: 20151124, end: 20151215
  2. METHADONE [Suspect]
     Active Substance: METHADONE HYDROCHLORIDE
     Dosage: 45 MG (ONE TIME DOSE 15 MG)
     Route: 048
     Dates: start: 20160208, end: 20160208
  3. LYRICA [Concomitant]
     Active Substance: PREGABALIN
     Dosage: 100 MG
     Route: 048
     Dates: start: 20160119, end: 20160121
  4. MORPHINE HYDROCHLORIDE [Concomitant]
     Active Substance: MORPHINE HYDROCHLORIDE
     Dosage: 20 MG
     Route: 029
     Dates: start: 20160212, end: 20160215
  5. ATARAX?P [Concomitant]
     Active Substance: HYDROXYZINE HYDROCHLORIDE
     Indication: PRODUCT USED FOR UNKNOWN INDICATION
     Dosage: UNK
     Route: 065
  6. METHADONE [Suspect]
     Active Substance: METHADONE HYDROCHLORIDE
     Dosage: 30 MG (ONE TIME DOSE 10 MG)
     Route: 048
     Dates: start: 20160209, end: 20160210
  7. DECADRON [Concomitant]
     Active Substance: DEXAMETHASONE
     Indication: ANALGESIC THERAPY
     Dosage: 1 MG
     Route: 048
     Dates: end: 20160217
  8. MARCAIN [Concomitant]
     Active Substance: BUPIVACAINE HYDROCHLORIDE
     Dosage: 30 MG
     Route: 029
     Dates: start: 20160224, end: 20160303
  9. METHADONE [Suspect]
     Active Substance: METHADONE HYDROCHLORIDE
     Indication: CANCER PAIN
     Dosage: 30 MG (ONE TIME DOSE 10 MG)
     Route: 048
     Dates: start: 20151113, end: 20151123
  10. MAGLAX [Concomitant]
     Active Substance: MAGNESIUM OXIDE
     Indication: PRODUCT USED FOR UNKNOWN INDICATION
     Dosage: 330 MG
     Route: 048
     Dates: end: 20160302
  11. LYRICA [Concomitant]
     Active Substance: PREGABALIN
     Indication: ANALGESIC THERAPY
     Dosage: 50 MG
     Route: 048
     Dates: start: 20160114, end: 20160118
  12. PRIMPERAN [Concomitant]
     Active Substance: METOCLOPRAMIDE HYDROCHLORIDE
     Indication: PRODUCT USED FOR UNKNOWN INDICATION
     Dosage: 15 MG
     Route: 048
     Dates: end: 20151208
  13. MARCAIN [Concomitant]
     Active Substance: BUPIVACAINE HYDROCHLORIDE
     Indication: ANALGESIC THERAPY
     Dosage: 5 MG
     Route: 029
     Dates: start: 20160208, end: 20160209
  14. MARCAIN [Concomitant]
     Active Substance: BUPIVACAINE HYDROCHLORIDE
     Dosage: 10 MG
     Route: 029
     Dates: start: 20160212, end: 20160222
  15. MORPHINE HYDROCHLORIDE [Concomitant]
     Active Substance: MORPHINE HYDROCHLORIDE
     Dosage: 30 MG
     Route: 029
     Dates: start: 20160216, end: 20160217
  16. OXINORM [Concomitant]
     Indication: ANALGESIC THERAPY
     Dosage: 25 MG, P.R.N
     Route: 048
     Dates: start: 20151111
  17. MORPHINE HYDROCHLORIDE [Concomitant]
     Active Substance: MORPHINE HYDROCHLORIDE
     Dosage: 15 MG
     Route: 029
     Dates: start: 20160209, end: 20160211
  18. METHADONE [Suspect]
     Active Substance: METHADONE HYDROCHLORIDE
     Dosage: 15 MG (ONE TIME DOSE 5 MG)
     Route: 048
     Dates: start: 20160211, end: 20160217
  19. MORPHINE HYDROCHLORIDE [Concomitant]
     Active Substance: MORPHINE HYDROCHLORIDE
     Indication: PRODUCT USED FOR UNKNOWN INDICATION
     Dosage: 5 MG
     Route: 029
     Dates: start: 20160208, end: 20160208
  20. MORPHINE HYDROCHLORIDE [Concomitant]
     Active Substance: MORPHINE HYDROCHLORIDE
     Dosage: 20 MG
     Route: 029
     Dates: start: 20160218, end: 20160302
  21. METHADONE [Suspect]
     Active Substance: METHADONE HYDROCHLORIDE
     Dosage: 75 MG (ONE TIME DOSE 25 MG)
     Route: 048
     Dates: start: 20151227, end: 20160112
  22. LOXOPROFEN [Concomitant]
     Active Substance: LOXOPROFEN
     Indication: ANALGESIC THERAPY
     Dosage: 180 MG
     Route: 048
     Dates: end: 20160217
  23. METHADONE [Suspect]
     Active Substance: METHADONE HYDROCHLORIDE
     Dosage: 60 MG (ONE TIME DOSE 20 MG)
     Route: 048
     Dates: start: 20151216, end: 20151226
  24. LYRICA [Concomitant]
     Active Substance: PREGABALIN
     Dosage: 150 MG
     Route: 048
     Dates: start: 20160122, end: 20160302
  25. METHADONE [Suspect]
     Active Substance: METHADONE HYDROCHLORIDE
     Dosage: 90 MG (ONE TIME DOSE 30 MG)
     Route: 048
     Dates: start: 20160113, end: 20160207
  26. REBAMIPIDE [Concomitant]
     Active Substance: REBAMIPIDE
     Indication: PRODUCT USED FOR UNKNOWN INDICATION
     Dosage: 300 MG
     Route: 048
     Dates: end: 20160217
  27. MARCAIN [Concomitant]
     Active Substance: BUPIVACAINE HYDROCHLORIDE
     Dosage: 7.5 MG
     Route: 029
     Dates: start: 20160209, end: 20160211
  28. MARCAIN [Concomitant]
     Active Substance: BUPIVACAINE HYDROCHLORIDE
     Dosage: 25 MG
     Route: 029
     Dates: start: 20160223, end: 20160223

REACTIONS (7)
  - Hyperaesthesia [Recovered/Resolved]
  - Delirium [Not Recovered/Not Resolved]
  - Nausea [Recovered/Resolved]
  - Insomnia [Recovered/Resolved]
  - Vomiting [Recovered/Resolved]
  - Anxiety [Not Recovered/Not Resolved]
  - Seizure [Recovered/Resolved]

NARRATIVE: CASE EVENT DATE: 20151207
